FAERS Safety Report 10009501 (Version 1)
Quarter: 2014Q1

REPORT INFORMATION
  Report Type: Spontaneous
  Country: US (occurrence: US)
  Receive Date: 20140312
  Receipt Date: 20140312
  Transmission Date: 20141002
  Serious: No
  Sender: FDA-Public Use
  Company Number: US-INCYTE CORPORATION-2012IN001811

PATIENT
  Age: 87 Year
  Sex: Female

DRUGS (3)
  1. JAKAFI [Suspect]
     Indication: MYELOFIBROSIS
     Dosage: 5 MG, BID
     Route: 048
     Dates: start: 20120806
  2. PREDNISONE [Suspect]
     Dosage: NOT SPECIFIED
     Dates: end: 2012
  3. PREDNISONE [Suspect]
     Dosage: NOT SPECIFIED (TAPERING OFF)
     Dates: start: 2012

REACTIONS (3)
  - Back pain [Not Recovered/Not Resolved]
  - Petechiae [Not Recovered/Not Resolved]
  - Contusion [Not Recovered/Not Resolved]
